FAERS Safety Report 8838383 (Version 2)
Quarter: 2014Q2

REPORT INFORMATION
  Report Type: Spontaneous
  Country: CA (occurrence: CA)
  Receive Date: 20121012
  Receipt Date: 20131029
  Transmission Date: 20141212
  Serious: Yes (Other)
  Sender: FDA-Public Use
  Company Number: CA-PURDUE-CAN-2012-0003321

PATIENT
  Age: 66 Year
  Sex: Female

DRUGS (7)
  1. OXYNEO [Suspect]
     Indication: RHEUMATOID ARTHRITIS
     Dosage: 200 MG, DAILY
     Route: 048
     Dates: start: 201205
  2. OXYIR TABLETS 5 MG [Suspect]
     Indication: PRODUCT USED FOR UNKNOWN INDICATION
     Dosage: 5 MG, PRN
     Route: 065
  3. FLOVENT [Concomitant]
     Indication: PRODUCT USED FOR UNKNOWN INDICATION
     Dosage: 125 MCG, 2 BID
     Route: 065
  4. VENTOLIN                           /00139501/ [Concomitant]
     Indication: PRODUCT USED FOR UNKNOWN INDICATION
     Dosage: 2 PUFF, PRN
     Route: 055
  5. ZOPICLONE [Concomitant]
     Indication: PRODUCT USED FOR UNKNOWN INDICATION
     Dosage: 7.5 MG, HS PRN
     Route: 048
  6. RANITIDINE [Concomitant]
     Indication: PRODUCT USED FOR UNKNOWN INDICATION
     Dosage: 15 MG, BID
     Route: 048
  7. ATIVAN [Concomitant]
     Indication: PRODUCT USED FOR UNKNOWN INDICATION
     Dosage: 0.5 MG, UNK
     Route: 060

REACTIONS (4)
  - Dyspnoea [Unknown]
  - Pharyngeal oedema [Unknown]
  - Drug hypersensitivity [Unknown]
  - Swelling face [Unknown]
